FAERS Safety Report 6547703-0 (Version None)
Quarter: 2010Q1

REPORT INFORMATION
  Report Type: 
  Country: None (occurrence: None)
  Receive Date: 20100123
  Receipt Date: 20100111
  Transmission Date: 20100710
  Serious: Yes (Life-Threatening, Hospitalization, Other)
  Sender: FDA-Public Use
  Company Number: US-JNJFOC-20100104880

PATIENT
  Age: 31 Year
  Sex: Female
  Weight: 58.97 kg

DRUGS (2)
  1. ULTRAM ER [Suspect]
     Indication: MEDICATION ERROR
     Route: 065
  2. CHANTIX [Suspect]
     Indication: SMOKING CESSATION THERAPY
     Route: 048

REACTIONS (18)
  - ACCIDENTAL OVERDOSE [None]
  - ANTISOCIAL BEHAVIOUR [None]
  - BACK PAIN [None]
  - COGNITIVE DISORDER [None]
  - CONVULSION [None]
  - DIZZINESS [None]
  - FEAR [None]
  - HAEMATEMESIS [None]
  - HEADACHE [None]
  - LOSS OF CONSCIOUSNESS [None]
  - NIGHTMARE [None]
  - OESOPHAGEAL RUPTURE [None]
  - PHOTOPSIA [None]
  - PUPILS UNEQUAL [None]
  - RESPIRATORY ARREST [None]
  - VASCULAR PROCEDURE COMPLICATION [None]
  - VITREOUS FLOATERS [None]
  - VOMITING [None]
